FAERS Safety Report 7328741-7 (Version None)
Quarter: 2011Q1

REPORT INFORMATION
  Report Type: 
  Country: None (occurrence: None)
  Receive Date: 20110303
  Receipt Date: 20110218
  Transmission Date: 20110831
  Serious: Yes (Hospitalization)
  Sender: FDA-Public Use
  Company Number: PHHY2011US14372

PATIENT
  Age: 70 Year
  Sex: Female

DRUGS (11)
  1. RECLAST [Suspect]
     Indication: OSTEOPENIA
     Dosage: 5 MG ONCE YEARLY
     Route: 042
     Dates: start: 20110211, end: 20110211
  2. COREG [Concomitant]
     Dosage: UNK
  3. ZOEOR [Concomitant]
     Dosage: UNK
  4. AVALIDE [Concomitant]
     Dosage: UNK
  5. JANUVIA [Concomitant]
     Dosage: UNK
  6. ASPIRIN [Concomitant]
     Dosage: UNK
  7. CALCIUM [Concomitant]
  8. TEKTURNA [Concomitant]
     Dosage: UNK
  9. LEVOTHYROXINE [Concomitant]
     Dosage: UNK
  10. VITAMIN D [Concomitant]
     Dosage: UNK
  11. LEVEMIR [Concomitant]
     Dosage: UNK

REACTIONS (2)
  - RENAL FAILURE ACUTE [None]
  - LIVER FUNCTION TEST ABNORMAL [None]
